FAERS Safety Report 7926282 (Version 6)
Quarter: 2016Q1

REPORT INFORMATION
  Report Type: Spontaneous
  Country: US (occurrence: US)
  Receive Date: 20110502
  Receipt Date: 20160217
  Transmission Date: 20160526
  Serious: Yes (Hospitalization)
  Sender: FDA-Public Use
  Company Number: US-ASTRAZENECA-2010SE61245

PATIENT
  Age: 30726 Day
  Sex: Female
  Weight: 59.9 kg

DRUGS (1)
  1. NEXIUM [Suspect]
     Active Substance: ESOMEPRAZOLE MAGNESIUM
     Indication: GASTROOESOPHAGEAL REFLUX DISEASE
     Route: 048
     Dates: start: 2005

REACTIONS (10)
  - Off label use [Unknown]
  - Pharyngeal disorder [Unknown]
  - Throat irritation [Unknown]
  - Dysphonia [Unknown]
  - Abdominal pain upper [Not Recovered/Not Resolved]
  - Dyspepsia [Unknown]
  - Drug dose omission [Not Recovered/Not Resolved]
  - Gastrooesophageal reflux disease [Unknown]
  - Gastric disorder [Unknown]
  - Oropharyngeal pain [Unknown]

NARRATIVE: CASE EVENT DATE: 20150318
